FAERS Safety Report 10506956 (Version 1)
Quarter: 2014Q4

REPORT INFORMATION
  Report Type: Spontaneous
  Country: US (occurrence: US)
  Receive Date: 20141009
  Receipt Date: 20141009
  Transmission Date: 20150528
  Serious: No
  Sender: FDA-Public Use
  Company Number: US-TEVA-443069USA

PATIENT
  Age: 46 Year
  Sex: Female
  Weight: 49.03 kg

DRUGS (3)
  1. ALVESCO [Concomitant]
     Active Substance: CICLESONIDE
     Indication: ALLERGY PROPHYLAXIS
  2. ALLEGRA [Concomitant]
     Active Substance: FEXOFENADINE HYDROCHLORIDE
     Indication: HYPERSENSITIVITY
  3. SEASONALE [Suspect]
     Active Substance: ETHINYL ESTRADIOL\LEVONORGESTREL
     Indication: CONTRACEPTION

REACTIONS (2)
  - Malaise [Recovered/Resolved]
  - Off label use [Not Recovered/Not Resolved]
